FAERS Safety Report 13697840 (Version 2)
Quarter: 2017Q3

REPORT INFORMATION
  Report Type: Report from Study
  Country: US (occurrence: US)
  Receive Date: 20170628
  Receipt Date: 20170720
  Transmission Date: 20171127
  Serious: Yes (Death, Hospitalization)
  Sender: FDA-Public Use
  Company Number: US-ACADIA PHARMACEUTICALS INC.-ACA-2017-004241

PATIENT
  Sex: Male

DRUGS (9)
  1. SEROQUEL [Concomitant]
     Active Substance: QUETIAPINE FUMARATE
     Indication: PRODUCT USED FOR UNKNOWN INDICATION
  2. SINEMET [Concomitant]
     Active Substance: CARBIDOPA\LEVODOPA
     Indication: PRODUCT USED FOR UNKNOWN INDICATION
  3. DIAZEPAM MERCK [Concomitant]
     Indication: PRODUCT USED FOR UNKNOWN INDICATION
  4. COUMADIN [Concomitant]
     Active Substance: WARFARIN SODIUM
     Indication: PRODUCT USED FOR UNKNOWN INDICATION
  5. NUPLAZID [Suspect]
     Active Substance: PIMAVANSERIN TARTRATE
     Indication: HALLUCINATION
     Dosage: 34 MG, QD
     Route: 048
     Dates: start: 201706, end: 201706
  6. NUPLAZID [Suspect]
     Active Substance: PIMAVANSERIN TARTRATE
     Indication: DELUSION
  7. DIGITEK [Concomitant]
     Active Substance: DIGOXIN
     Indication: PRODUCT USED FOR UNKNOWN INDICATION
  8. NUPLAZID [Suspect]
     Active Substance: PIMAVANSERIN TARTRATE
     Indication: PARKINSON^S DISEASE PSYCHOSIS
     Dosage: 17 MG, QD, FEW DAYS
     Route: 048
     Dates: start: 201706, end: 201706
  9. PROPANOLOL HYDROCHLORIDE [Concomitant]
     Active Substance: PROPRANOLOL HYDROCHLORIDE
     Indication: PRODUCT USED FOR UNKNOWN INDICATION

REACTIONS (5)
  - Hepatic cirrhosis [Fatal]
  - Cardiac failure congestive [Not Recovered/Not Resolved]
  - International normalised ratio increased [Unknown]
  - Confusional state [Not Recovered/Not Resolved]
  - Hallucination [Not Recovered/Not Resolved]
